FAERS Safety Report 12306011 (Version 1)
Quarter: 2016Q2

REPORT INFORMATION
  Report Type: Spontaneous
  Country: DE (occurrence: DE)
  Receive Date: 20160426
  Receipt Date: 20160426
  Transmission Date: 20160815
  Serious: Yes (Hospitalization)
  Sender: FDA-Public Use
  Company Number: DE-B.I. PHARMACEUTICALS,INC./RIDGEFIELD-2016-BI-26016DE

PATIENT
  Age: 69 Year
  Sex: Female

DRUGS (2)
  1. PRADAXA [Suspect]
     Active Substance: DABIGATRAN ETEXILATE MESYLATE
     Indication: ATRIAL FIBRILLATION
     Dosage: 300 MG
     Route: 065
  2. PRADAXA [Suspect]
     Active Substance: DABIGATRAN ETEXILATE MESYLATE
     Dosage: 220 MG
     Route: 065

REACTIONS (5)
  - Intestinal haemorrhage [Recovered/Resolved]
  - Pallor [Recovered/Resolved]
  - Faeces discoloured [Recovered/Resolved]
  - Haemoglobin decreased [Recovered/Resolved]
  - Tachycardia [Recovered/Resolved]
